FAERS Safety Report 8567376-5 (Version None)
Quarter: 2012Q3

REPORT INFORMATION
  Report Type: 
  Country: None (occurrence: None)
  Receive Date: 20120803
  Receipt Date: 20120801
  Transmission Date: 20120928
  Serious: Yes (Hospitalization)
  Sender: FDA-Public Use
  Company Number: PHHY2012JP059958

PATIENT
  Age: 81 Year
  Sex: Male

DRUGS (4)
  1. NIVADIL [Concomitant]
     Dosage: 4 MG, UNK
     Route: 048
     Dates: start: 20111217
  2. MICARDIS [Concomitant]
     Dosage: 80 MG, UNK
     Route: 048
     Dates: start: 20120622
  3. ORAL ANTIDIABETICS [Concomitant]
     Indication: DIABETES MELLITUS
  4. RASILEZ [Suspect]
     Indication: HYPERTENSION
     Dosage: 150 MG, DAILY
     Route: 048
     Dates: start: 20111217, end: 20120621

REACTIONS (1)
  - CEREBROVASCULAR ACCIDENT [None]
